FAERS Safety Report 4567977-5 (Version None)
Quarter: 2005Q1

REPORT INFORMATION
  Report Type: 
  Country: None (occurrence: None)
  Receive Date: 20050131
  Receipt Date: 20050118
  Transmission Date: 20050727
  Serious: Yes (Death)
  Sender: FDA-Public Use
  Company Number: 2005-BP-00851YA

PATIENT
  Age: 80 Year
  Sex: Male

DRUGS (3)
  1. HARNAL (TAMSULOSIN) (KA) (TAMSULOSIN HYDROCHLORIDE) [Suspect]
     Indication: BENIGN PROSTATIC HYPERPLASIA
     Dosage: 0.2 MG (3 G, 0.2. MG QD, 3G) PO
     Route: 048
     Dates: start: 20020101, end: 20041230
  2. HARNAL (TAMSULOSIN) (KA) (TAMSULOSIN HYDROCHLORIDE) [Suspect]
     Indication: BENIGN PROSTATIC HYPERPLASIA
     Dosage: 0.2 MG (3 G, 0.2. MG QD, 3G) PO
     Route: 048
     Dates: start: 20041228, end: 20041230
  3. RANITIDINE [Concomitant]

REACTIONS (4)
  - GENERAL PHYSICAL HEALTH DETERIORATION [None]
  - INTERSTITIAL LUNG DISEASE [None]
  - LYMPHOCYTE STIMULATION TEST POSITIVE [None]
  - UPPER RESPIRATORY TRACT INFLAMMATION [None]
